FAERS Safety Report 5315204-3 (Version None)
Quarter: 2007Q2

REPORT INFORMATION
  Report Type: 
  Country: None (occurrence: None)
  Receive Date: 20070502
  Receipt Date: 20070420
  Transmission Date: 20071010
  Serious: Yes (Hospitalization, Other)
  Sender: FDA-Public Use
  Company Number: US-PFIZER INC-2007016783

PATIENT
  Sex: Female
  Weight: 53.5 kg

DRUGS (8)
  1. LYRICA [Suspect]
     Indication: NEURALGIA
     Route: 048
     Dates: start: 20060101, end: 20070222
  2. NEURONTIN [Suspect]
     Indication: NEURALGIA
  3. ACTOS [Concomitant]
  4. STARLIX [Concomitant]
  5. LIPITOR [Concomitant]
  6. ZETIA [Concomitant]
  7. DIOVAN [Concomitant]
  8. TENORMIN [Concomitant]

REACTIONS (7)
  - COORDINATION ABNORMAL [None]
  - DEHYDRATION [None]
  - HYPOGLYCAEMIA [None]
  - HYPOGLYCAEMIC SEIZURE [None]
  - HYPOTENSION [None]
  - TREMOR [None]
  - VERTIGO [None]
